FAERS Safety Report 6524671-9 (Version None)
Quarter: 2010Q1

REPORT INFORMATION
  Report Type: 
  Country: None (occurrence: None)
  Receive Date: 20100104
  Receipt Date: 20091204
  Transmission Date: 20100710
  Serious: No
  Sender: FDA-Public Use
  Company Number: US-BAYER-200942315NA

PATIENT
  Age: 44 Year
  Sex: Female
  Weight: 157 kg

DRUGS (7)
  1. ULTRAVIST (PHARMACY BULK) [Suspect]
     Indication: COMPUTERISED TOMOGRAM
     Dosage: TOTAL DAILY DOSE: 120 ML  UNIT DOSE: 500 ML
     Route: 042
     Dates: start: 20091204, end: 20091204
  2. LISINIPRIL [Concomitant]
  3. METFORMIN [Concomitant]
  4. NORVASC [Concomitant]
  5. ASPIRIN [Concomitant]
  6. SIMVASTIN [Concomitant]
  7. GLIPIZIDE [Concomitant]

REACTIONS (1)
  - URTICARIA [None]
